FAERS Safety Report 6446062-1 (Version None)
Quarter: 2009Q4

REPORT INFORMATION
  Report Type: 
  Country: None (occurrence: None)
  Receive Date: 20091119
  Receipt Date: 20091109
  Transmission Date: 20100525
  Serious: Yes (Hospitalization)
  Sender: FDA-Public Use
  Company Number: US-BAYER-200938923NA

PATIENT
  Age: 21 Year
  Sex: Female

DRUGS (1)
  1. MIRENA [Suspect]
     Indication: CONTRACEPTION
     Route: 015
     Dates: start: 20050701, end: 20091008

REACTIONS (8)
  - ABASIA [None]
  - ABDOMINAL PAIN LOWER [None]
  - ACNE [None]
  - DEPRESSION [None]
  - DRUG HYPERSENSITIVITY [None]
  - HEADACHE [None]
  - HOT FLUSH [None]
  - VAGINAL HAEMORRHAGE [None]
